FAERS Safety Report 7703040-X (Version None)
Quarter: 2011Q3

REPORT INFORMATION
  Report Type: 
  Country: None (occurrence: None)
  Receive Date: 20110817
  Receipt Date: 20110802
  Transmission Date: 20111222
  Serious: Yes (Death)
  Sender: FDA-Public Use
  Company Number: 1000022454

PATIENT
  Age: 33 Year
  Sex: Female
  Weight: 97.52 kg

DRUGS (3)
  1. PITOCIN (OXYTOCIN) (OXYTOCIN) [Concomitant]
  2. FENTANYL/BUPIVACAINE/EPINEPHRINE EPIDURAL (SOLUTION) [Concomitant]
  3. CERVIDIL [Suspect]
     Indication: LABOUR INDUCTION
     Dosage: 20 MG (10 MG, 2 IN 1 D), VAGINAL INSERT
     Route: 067
     Dates: start: 20101122, end: 20101122

REACTIONS (18)
  - UTERINE ATONY [None]
  - ATRIAL THROMBOSIS [None]
  - HYPERKALAEMIA [None]
  - VAGINAL HAEMORRHAGE [None]
  - UNRESPONSIVE TO STIMULI [None]
  - PULMONARY OEDEMA [None]
  - DISSEMINATED INTRAVASCULAR COAGULATION [None]
  - MATERNAL EXPOSURE DURING PREGNANCY [None]
  - OVARIAN HAEMORRHAGE [None]
  - MULTI-ORGAN FAILURE [None]
  - ANAPHYLACTOID SYNDROME OF PREGNANCY [None]
  - CAESAREAN SECTION [None]
  - CYSTITIS HAEMORRHAGIC [None]
  - MYOCLONUS [None]
  - CARDIO-RESPIRATORY ARREST [None]
  - OPERATIVE HAEMORRHAGE [None]
  - PERITONEAL HAEMATOMA [None]
  - ATELECTASIS [None]
